FAERS Safety Report 8828712 (Version 1)
Quarter: 2012Q4

REPORT INFORMATION
  Report Type: 
  Country: US (occurrence: US)
  Receive Date: 20121008
  Receipt Date: 20121008
  Transmission Date: 20130627
  Serious: No
  Sender: FDA-Public Use
  Company Number: US-009507513-1210USA002103

PATIENT
  Age: 12 Year
  Sex: Female

DRUGS (2)
  1. SINGULAIR [Suspect]
     Indication: ASTHMA
     Dosage: 5 mg, qd
     Route: 048
  2. SINGULAIR [Suspect]
     Indication: RHINITIS ALLERGIC

REACTIONS (1)
  - Suicidal ideation [Unknown]
